FAERS Safety Report 8155901-8 (Version None)
Quarter: 2012Q1

REPORT INFORMATION
  Report Type: 
  Country: None (occurrence: None)
  Receive Date: 20120216
  Receipt Date: 20120202
  Transmission Date: 20120608
  Serious: Yes (Disabling)
  Sender: FDA-Public Use
  Company Number: 1000025970

PATIENT
  Age: 72 Year
  Sex: Female

DRUGS (3)
  1. NEUPRO (ROTIGOTINE) (POULTICE OR PATCH) [Suspect]
     Indication: PARKINSON'S DISEASE
     Dosage: 1 DOSAGE FORM (1 DOSAGE FORMS, 1 IN 1 D), TRANSDERMAL
     Route: 062
     Dates: start: 20110810, end: 20110927
  2. ESCITALOPRAM OXALATE [Suspect]
     Dosage: 1 DOSAGE FORM (1 DOSAGE FORMS, 1 IN 1 D), ORAL
     Route: 048
     Dates: start: 20110201, end: 20111105
  3. DEXAFREE (DEXAMETHASONE SODIUM PHOSPHATE) (EYE DROPS) [Suspect]
     Indication: MACULAR OEDEMA
     Dosage: INTRAOCULAR
     Route: 031
     Dates: start: 20110301, end: 20110927

REACTIONS (1)
  - KERATITIS [None]
